FAERS Safety Report 9520541 (Version 2)
Quarter: 2013Q4

REPORT INFORMATION
  Report Type: Report from Study
  Country: DE (occurrence: DE)
  Receive Date: 20130913
  Receipt Date: 20131108
  Transmission Date: 20140711
  Serious: Yes (Hospitalization, Other)
  Sender: FDA-Public Use
  Company Number: DE-BIOGENIDEC-2013BI085052

PATIENT
  Age: 50 Year
  Sex: Male

DRUGS (7)
  1. TYSABRI [Suspect]
     Indication: RELAPSING-REMITTING MULTIPLE SCLEROSIS
     Route: 042
     Dates: start: 20120625
  2. LEVODOPA AND BENSERAZIDE [Concomitant]
     Indication: PARKINSONISM
     Dates: start: 20130212
  3. ASS [Concomitant]
     Indication: ACUTE MYOCARDIAL INFARCTION
     Dates: start: 20060101
  4. LYRICA [Concomitant]
     Indication: PARAESTHESIA
     Dates: start: 20110101
  5. VESICARE [Concomitant]
     Indication: NEUROGENIC BLADDER
     Dates: start: 20121212
  6. BACLOFEN [Concomitant]
     Indication: MUSCLE SPASTICITY
     Dates: start: 20120101
  7. BACLOFEN [Concomitant]
     Indication: MUSCLE SPASTICITY
     Dates: start: 20130513, end: 20130513

REACTIONS (2)
  - Electroencephalogram abnormal [Recovered/Resolved]
  - Toxicity to various agents [Recovered/Resolved]
